FAERS Safety Report 20679778 (Version 1)
Quarter: 2022Q2

REPORT INFORMATION
  Report Type: Spontaneous
  Country: PT (occurrence: PT)
  Receive Date: 20220406
  Receipt Date: 20220406
  Transmission Date: 20220721
  Serious: Yes (Hospitalization)
  Sender: FDA-Public Use
  Company Number: PT-002147023-NVSC2022PT069241

PATIENT
  Sex: Female

DRUGS (1)
  1. XOLAIR [Suspect]
     Active Substance: OMALIZUMAB
     Indication: Asthma
     Route: 065

REACTIONS (6)
  - Anaphylactic reaction [Unknown]
  - Wheezing [Unknown]
  - Dyspnoea [Unknown]
  - Cough [Unknown]
  - Diarrhoea [Unknown]
  - Bronchospasm [Unknown]
